FAERS Safety Report 24277344 (Version 2)
Quarter: 2025Q3

REPORT INFORMATION
  Report Type: Spontaneous
  Country: JP (occurrence: JP)
  Receive Date: 20240903
  Receipt Date: 20250909
  Transmission Date: 20251021
  Serious: Yes (Death, Other)
  Sender: GENMAB
  Company Number: JP-GENMAB-2024-03170

PATIENT
  Age: 9 Decade

DRUGS (2)
  1. EPKINLY [Suspect]
     Active Substance: EPCORITAMAB-BYSP
     Indication: Diffuse large B-cell lymphoma
     Route: 065
     Dates: start: 20240717, end: 20240717
  2. EPKINLY [Suspect]
     Active Substance: EPCORITAMAB-BYSP
     Route: 065
     Dates: start: 20240724, end: 20240724

REACTIONS (2)
  - Diffuse large B-cell lymphoma [Fatal]
  - COVID-19 [Fatal]

NARRATIVE: CASE EVENT DATE: 20240729
